FAERS Safety Report 6200603-8 (Version None)
Quarter: 2009Q2

REPORT INFORMATION
  Report Type: 
  Country: None (occurrence: None)
  Receive Date: 20090522
  Receipt Date: 20090512
  Transmission Date: 20091009
  Serious: Yes (Hospitalization, Other)
  Sender: FDA-Public Use
  Company Number: US-AMGEN-QUU346837

PATIENT
  Sex: Female

DRUGS (5)
  1. ENBREL [Suspect]
     Indication: PSORIATIC ARTHROPATHY
     Route: 058
     Dates: start: 20060101
  2. ENBREL [Suspect]
     Indication: RHEUMATOID ARTHRITIS
  3. ENBREL [Suspect]
     Indication: PSORIASIS
  4. SYNTHROID [Concomitant]
     Route: 048
  5. UNSPECIFIED MEDICATION [Concomitant]
     Dates: start: 20060101

REACTIONS (8)
  - AMNIOTIC FLUID VOLUME DECREASED [None]
  - DRUG HYPERSENSITIVITY [None]
  - GESTATIONAL DIABETES [None]
  - PREMATURE LABOUR [None]
  - PREMATURE RUPTURE OF MEMBRANES [None]
  - PSORIASIS [None]
  - PULMONARY EMBOLISM [None]
  - RHEUMATOID ARTHRITIS [None]
